FAERS Safety Report 6479850-6 (Version None)
Quarter: 2009Q4

REPORT INFORMATION
  Report Type: 
  Country: None (occurrence: None)
  Receive Date: 20091208
  Receipt Date: 20091130
  Transmission Date: 20100525
  Serious: Yes (Other)
  Sender: FDA-Public Use
  Company Number: JP-ROCHE-671564

PATIENT
  Age: 46 Year
  Sex: Female

DRUGS (2)
  1. RIBAVIRIN [Suspect]
     Route: 065
     Dates: start: 20081001
  2. PEG-INTRON [Suspect]
     Route: 065
     Dates: start: 20081001

REACTIONS (3)
  - BASEDOW'S DISEASE [None]
  - DIABETIC KETOACIDOSIS [None]
  - TYPE 1 DIABETES MELLITUS [None]
